FAERS Safety Report 4461319-1 (Version None)
Quarter: 2004Q3

REPORT INFORMATION
  Report Type: 
  Country: None (occurrence: None)
  Receive Date: 20040928
  Receipt Date: 20040609
  Transmission Date: 20050211
  Serious: Yes (Death, Congenital Anomaly)
  Sender: FDA-Public Use
  Company Number: DE-GLAXOSMITHKLINE-D0043961B

PATIENT
  Sex: Female

DRUGS (8)
  1. ZOVIRAX [Suspect]
     Dates: end: 20021101
  2. L-THYROXIN-HENNING [Concomitant]
  3. YASMIN [Concomitant]
  4. VITAMINES [Concomitant]
     Dosage: 1TAB PER DAY
     Dates: start: 20021119, end: 20021203
  5. MAGNESIOCARD [Concomitant]
     Dosage: 1APP THREE TIMES PER DAY
     Dates: start: 20021119
  6. KADEFUNGIN [Concomitant]
     Dates: start: 20030109, end: 20040114
  7. LACTIC ACID [Concomitant]
     Dates: start: 20030115
  8. PREGNAVITE [Concomitant]

REACTIONS (6)
  - ABORTION INDUCED [None]
  - DRUG EXPOSURE DURING PREGNANCY [None]
  - POLYHYDRAMNIOS [None]
  - SKELETON DYSPLASIA [None]
  - SMALL FOR DATES BABY [None]
  - THANATOPHORIC DWARFISM [None]
